FAERS Safety Report 8268056-6 (Version None)
Quarter: 2012Q2

REPORT INFORMATION
  Report Type: 
  Country: None (occurrence: None)
  Receive Date: 20120409
  Receipt Date: 20120403
  Transmission Date: 20120825
  Serious: Yes (Other)
  Sender: FDA-Public Use
  Company Number: DE-PFIZER INC-2012084883

PATIENT

DRUGS (1)
  1. DIBLOCIN PP [Suspect]
     Dosage: 4 MG, UNK

REACTIONS (2)
  - PYLOROSPASM [None]
  - BENIGN PROSTATIC HYPERPLASIA [None]
